FAERS Safety Report 19849722 (Version 4)
Quarter: 2022Q1

REPORT INFORMATION
  Report Type: Spontaneous
  Country: CA (occurrence: CA)
  Receive Date: 20210917
  Receipt Date: 20220216
  Transmission Date: 20220424
  Serious: Yes (Other)
  Sender: FDA-Public Use
  Company Number: CA-AMERICAN REGENT INC-2021002421

PATIENT
  Age: 86 Year
  Sex: Female

DRUGS (5)
  1. VENOFER [Suspect]
     Active Substance: IRON SUCROSE
     Indication: Iron deficiency
     Dosage: 300 MILLIGRAM, SINGLE
     Route: 042
     Dates: start: 202011, end: 202011
  2. VENOFER [Suspect]
     Active Substance: IRON SUCROSE
     Indication: Iron deficiency anaemia
     Dosage: 300 MILLIGRAM, SINGLE
     Route: 042
     Dates: start: 2020, end: 2020
  3. VENOFER [Suspect]
     Active Substance: IRON SUCROSE
     Dosage: 300 MILLIGRAM, SINGLE
     Route: 042
     Dates: start: 202012, end: 202012
  4. VENOFER [Suspect]
     Active Substance: IRON SUCROSE
     Dosage: 300 MILLIGRAM IN 250 ML NORMAL SALINE, SINGLE
     Route: 042
     Dates: start: 20210901, end: 20210901
  5. VENOFER [Suspect]
     Active Substance: IRON SUCROSE
     Dosage: 20 MILLIGRAM PER MILLILITRE

REACTIONS (11)
  - Unresponsive to stimuli [Recovered/Resolved]
  - Cold sweat [Unknown]
  - Urinary incontinence [Unknown]
  - Fall [Unknown]
  - Urticaria [Unknown]
  - Erythema [Unknown]
  - Hyperhidrosis [Unknown]
  - Asthenia [Unknown]
  - Depressed level of consciousness [Recovered/Resolved]
  - Hypotension [Recovered/Resolved]
  - Pruritus [Unknown]

NARRATIVE: CASE EVENT DATE: 20210901
